FAERS Safety Report 5006987-0 (Version None)
Quarter: 2006Q2

REPORT INFORMATION
  Report Type: 
  Country: None (occurrence: None)
  Receive Date: 20060517
  Receipt Date: 20060508
  Transmission Date: 20061013
  Serious: Yes (Other)
  Sender: FDA-Public Use
  Company Number: GXKR2006GB02556

PATIENT
  Age: 73 Year
  Sex: Male

DRUGS (4)
  1. DEXAMETHASONE [Suspect]
     Indication: UVEITIS
  2. OFLOXACIN [Suspect]
     Indication: UVEITIS
     Dosage: TOPICAL
     Route: 061
  3. FUCITHALMIC (FUSIDIC ACID) [Suspect]
     Indication: UVEITIS
  4. CYCLOPENTOLATE (CYCLOPENTOLATE) [Suspect]
     Indication: UVEITIS

REACTIONS (2)
  - CORNEAL DEPOSITS [None]
  - DRUG INTERACTION [None]
